FAERS Safety Report 13445342 (Version 1)
Quarter: 2017Q2

REPORT INFORMATION
  Report Type: Spontaneous
  Country: IT (occurrence: IT)
  Receive Date: 20170414
  Receipt Date: 20170414
  Transmission Date: 20170830
  Serious: Yes (Other)
  Sender: FDA-Public Use
  Company Number: PHHY2017IT052494

PATIENT
  Age: 57 Year
  Sex: Female

DRUGS (1)
  1. CORBILTA [Suspect]
     Active Substance: CARBIDOPA\ENTACAPONE\LEVODOPA
     Indication: PARKINSON^S DISEASE
     Dosage: 5 DF, QD
     Route: 048
     Dates: start: 20161212, end: 20170110

REACTIONS (7)
  - Dyskinesia [Unknown]
  - Muscle rigidity [Unknown]
  - Fall [Unknown]
  - Product substitution issue [Unknown]
  - Balance disorder [Unknown]
  - Product quality issue [Unknown]
  - Motor dysfunction [Unknown]

NARRATIVE: CASE EVENT DATE: 20161215
